FAERS Safety Report 5151444-4 (Version None)
Quarter: 2006Q4

REPORT INFORMATION
  Report Type: 
  Country: None (occurrence: None)
  Receive Date: 20061115
  Receipt Date: 20060810
  Transmission Date: 20070319
  Serious: Yes (Hospitalization, Other)
  Sender: FDA-Public Use
  Company Number: PHEH2006US10245

PATIENT
  Age: 60 Year
  Sex: Male

DRUGS (5)
  1. CHEMOTHERAPEUTICS,OTHER [Concomitant]
     Dates: start: 20060101, end: 20060501
  2. EXJADE [Suspect]
     Indication: IRON OVERLOAD
     Dosage: 1500 MG, QD
     Route: 048
     Dates: start: 20060101, end: 20060801
  3. EXJADE [Suspect]
     Dates: start: 20060805
  4. DESFERAL [Concomitant]
  5. VIDAZA [Concomitant]
     Dates: start: 20051201, end: 20060401

REACTIONS (12)
  - BLOOD CREATININE INCREASED [None]
  - CARDIAC FAILURE [None]
  - CHROMATURIA [None]
  - FLANK PAIN [None]
  - FLUID OVERLOAD [None]
  - GENERALISED OEDEMA [None]
  - HAEMATURIA [None]
  - HAEMOGLOBIN DECREASED [None]
  - HEPATIC ENZYME INCREASED [None]
  - HYPERTENSION [None]
  - RENAL IMPAIRMENT [None]
  - VOMITING [None]
